FAERS Safety Report 10700523 (Version 2)
Quarter: 2015Q1

REPORT INFORMATION
  Report Type: Spontaneous
  Country: JP (occurrence: None)
  Receive Date: 20150107
  Receipt Date: 20150130
  Transmission Date: 20150721
  Serious: Yes (Hospitalization)
  Sender: FDA-Public Use
  Company Number: 2014BCR01188

PATIENT
  Age: 88 Year
  Sex: Male

DRUGS (3)
  1. PANSPORIN (CEFOTIAM HYDROCHLORIDE) [Concomitant]
  2. VOLTAREN [Suspect]
     Active Substance: DICLOFENAC SODIUM
     Indication: INFLUENZA
     Route: 054
     Dates: start: 20141220
  3. RAPIACTA [Suspect]
     Active Substance: PERAMIVIR
     Indication: INFLUENZA
     Route: 042
     Dates: start: 20141220, end: 20141220

REACTIONS (1)
  - Acute kidney injury [None]
